FAERS Safety Report 5835122-1 (Version None)
Quarter: 2008Q3

REPORT INFORMATION
  Report Type: 
  Country: None (occurrence: None)
  Receive Date: 20080805
  Receipt Date: 20080805
  Transmission Date: 20090109
  Serious: Yes (Life-Threatening)
  Sender: FDA-Public Use
  Company Number: None

PATIENT
  Age: 51 Year
  Sex: Female
  Weight: 57.1532 kg

DRUGS (2)
  1. FENTANYL [Suspect]
     Indication: PAIN
     Dosage: 175 MCG IV IV DRIP
     Route: 041
     Dates: start: 20080801, end: 20080801
  2. VERSED [Suspect]
     Indication: PAIN
     Dosage: 5 MG IV IV DRIP
     Route: 041
     Dates: start: 20080801, end: 20080801

REACTIONS (8)
  - CONVULSION [None]
  - DYSPNOEA [None]
  - HEART RATE DECREASED [None]
  - HYPOTENSION [None]
  - LOSS OF CONSCIOUSNESS [None]
  - RESPIRATORY RATE DECREASED [None]
  - SYNCOPE [None]
  - VOMITING [None]
